FAERS Safety Report 6057632-7 (Version None)
Quarter: 2009Q1

REPORT INFORMATION
  Report Type: 
  Country: None (occurrence: None)
  Receive Date: 20090129
  Receipt Date: 20080220
  Transmission Date: 20090719
  Serious: No
  Sender: FDA-Public Use
  Company Number: US-BAUSCH-2008BL000746

PATIENT
  Age: 50 Year
  Sex: Female

DRUGS (1)
  1. BACITRACIN OPHTHALMIC OINTMENT [Suspect]
     Indication: BLEPHARITIS
     Route: 047
     Dates: start: 20080217, end: 20080217

REACTIONS (1)
  - EYE ALLERGY [None]
